FAERS Safety Report 18071635 (Version 11)
Quarter: 2025Q3

REPORT INFORMATION
  Report Type: Report from Study
  Country: US (occurrence: US)
  Receive Date: 20200727
  Receipt Date: 20250711
  Transmission Date: 20251021
  Serious: Yes (Hospitalization)
  Sender: TAKEDA
  Company Number: US-SHIRE-US202024099

PATIENT
  Sex: Female
  Weight: 36 kg

DRUGS (49)
  1. HUMAN IMMUNOGLOBULIN G [Suspect]
     Active Substance: HUMAN IMMUNOGLOBULIN G
     Indication: Gastrointestinal disorder
     Dosage: 17 GRAM, 1/WEEK
     Dates: start: 20200709
  2. HUMAN IMMUNOGLOBULIN G [Suspect]
     Active Substance: HUMAN IMMUNOGLOBULIN G
     Indication: Autonomic neuropathy
     Dosage: 25 GRAM, 1/WEEK
  3. HUMAN IMMUNOGLOBULIN G [Suspect]
     Active Substance: HUMAN IMMUNOGLOBULIN G
     Dosage: 25 GRAM, Q2WEEKS
  4. HUMAN IMMUNOGLOBULIN G [Suspect]
     Active Substance: HUMAN IMMUNOGLOBULIN G
     Dosage: 25 GRAM, Q4WEEKS
  5. RISPERIDONE [Suspect]
     Active Substance: RISPERIDONE
     Indication: Product used for unknown indication
  6. DIPHENHYDRAMINE HYDROCHLORIDE [Concomitant]
     Active Substance: DIPHENHYDRAMINE HYDROCHLORIDE
  7. PFIZER-BIONTECH COVID-19 VACCINE [Concomitant]
     Active Substance: TOZINAMERAN
  8. EPINEPHRINE [Concomitant]
     Active Substance: EPINEPHRINE
  9. SODIUM CHLORIDE [Concomitant]
     Active Substance: SODIUM CHLORIDE
  10. ANAFRANIL [Concomitant]
     Active Substance: CLOMIPRAMINE HYDROCHLORIDE
  11. ONDANSETRON HYDROCHLORIDE [Concomitant]
     Active Substance: ONDANSETRON HYDROCHLORIDE
  12. AZITHROMYCIN [Concomitant]
     Active Substance: AZITHROMYCIN
  13. HYDROCORTISONE [Concomitant]
     Active Substance: HYDROCORTISONE
  14. ACETAMINOPHEN [Concomitant]
     Active Substance: ACETAMINOPHEN
  15. MOTEGRITY [Concomitant]
     Active Substance: PRUCALOPRIDE SUCCINATE
  16. CLONAZEPAM [Concomitant]
     Active Substance: CLONAZEPAM
  17. SODIUM CHLORIDE [Concomitant]
     Active Substance: SODIUM CHLORIDE
  18. POTASSIUM CITRATE [Concomitant]
     Active Substance: POTASSIUM CITRATE
  19. ABILIFY [Concomitant]
     Active Substance: ARIPIPRAZOLE
  20. LIDOCAINE [Concomitant]
     Active Substance: LIDOCAINE
  21. HYDROXYZINE [Concomitant]
     Active Substance: HYDROXYZINE HYDROCHLORIDE
  22. SOLU-CORTEF [Concomitant]
     Active Substance: HYDROCORTISONE SODIUM SUCCINATE
  23. GAS-X [Concomitant]
     Active Substance: DIMETHICONE
  24. ZOFRAN [Concomitant]
     Active Substance: ONDANSETRON HYDROCHLORIDE
  25. LINZESS [Concomitant]
     Active Substance: LINACLOTIDE
  26. VITAMIN D3 [Concomitant]
     Active Substance: CHOLECALCIFEROL
  27. ZELNORM [Concomitant]
     Active Substance: TEGASEROD MALEATE
  28. GINGER [Concomitant]
     Active Substance: GINGER
  29. REGLAN [Concomitant]
     Active Substance: METOCLOPRAMIDE HYDROCHLORIDE
  30. AMITIZA [Concomitant]
     Active Substance: LUBIPROSTONE
  31. ATIVAN [Concomitant]
     Active Substance: LORAZEPAM
  32. PROZAC [Concomitant]
     Active Substance: FLUOXETINE HYDROCHLORIDE
  33. FISH OIL [Concomitant]
     Active Substance: FISH OIL
  34. VITAMIN D [Concomitant]
     Active Substance: VITAMIN D NOS
  35. ERYPED [Concomitant]
     Active Substance: ERYTHROMYCIN ETHYLSUCCINATE
  36. LINZESS [Concomitant]
     Active Substance: LINACLOTIDE
  37. CYTOTEC [Concomitant]
     Active Substance: MISOPROSTOL
  38. ZYPREXA [Concomitant]
     Active Substance: OLANZAPINE
  39. HEPARIN [Concomitant]
     Active Substance: HEPARIN SODIUM
  40. CYMBALTA [Concomitant]
     Active Substance: DULOXETINE HYDROCHLORIDE
  41. ZOLOFT [Concomitant]
     Active Substance: SERTRALINE HYDROCHLORIDE
  42. SPRAVATO [Concomitant]
     Active Substance: ESKETAMINE
  43. QUETIAPINE FUMARATE [Concomitant]
     Active Substance: QUETIAPINE FUMARATE
  44. MAGNESIUM CITRATE [Concomitant]
     Active Substance: MAGNESIUM CITRATE
  45. HYDROXYZINE PAMOATE [Concomitant]
     Active Substance: HYDROXYZINE PAMOATE
  46. YAZ [Concomitant]
     Active Substance: DROSPIRENONE\ETHINYL ESTRADIOL
  47. IBSRELA [Concomitant]
     Active Substance: TENAPANOR HYDROCHLORIDE
  48. BUSPIRONE HCL [Concomitant]
     Active Substance: BUSPIRONE HYDROCHLORIDE
  49. FLUVOXAMINE MALEATE [Concomitant]
     Active Substance: FLUVOXAMINE MALEATE

REACTIONS (13)
  - Eating disorder [Unknown]
  - Mental disorder [Unknown]
  - Infusion related reaction [Unknown]
  - Gastrointestinal disorder [Unknown]
  - Panic attack [Unknown]
  - Weight increased [Unknown]
  - General physical health deterioration [Unknown]
  - Weight decreased [Recovered/Resolved]
  - Blood pressure decreased [Unknown]
  - Insurance issue [Unknown]
  - Product use issue [Unknown]
  - Pain [Unknown]
  - Fatigue [Unknown]
